FAERS Safety Report 14100085 (Version 1)
Quarter: 2017Q4

REPORT INFORMATION
  Report Type: Report from Study
  Country: US (occurrence: US)
  Receive Date: 20171017
  Receipt Date: 20171017
  Transmission Date: 20180321
  Serious: Yes (Other)
  Sender: FDA-Public Use
  Company Number: US-SHIRE-US201725313

PATIENT
  Sex: Male

DRUGS (1)
  1. GATTEX [Suspect]
     Active Substance: TEDUGLUTIDE\WATER
     Indication: PRODUCT USED FOR UNKNOWN INDICATION
     Dosage: 0.5350 (UNIT UNKNOWN), UNK
     Route: 065
     Dates: start: 20170615

REACTIONS (2)
  - Intestinal obstruction [Recovering/Resolving]
  - Electrolyte depletion [Not Recovered/Not Resolved]
